FAERS Safety Report 9542048 (Version 1)
Quarter: 2013Q3

REPORT INFORMATION
  Report Type: Report from Study
  Country: US (occurrence: US)
  Receive Date: 20130923
  Receipt Date: 20130923
  Transmission Date: 20140515
  Serious: Yes (Other)
  Sender: FDA-Public Use
  Company Number: US-JNJFOC-20130909280

PATIENT
  Age: 69 Year
  Sex: Female

DRUGS (2)
  1. REMICADE [Suspect]
     Indication: PSORIASIS
     Dosage: SECOND INFUSION
     Route: 042
     Dates: start: 201307, end: 201308
  2. REMICADE [Suspect]
     Indication: PSORIASIS
     Dosage: FIRST INFUSION
     Route: 042
     Dates: start: 201307

REACTIONS (1)
  - Colitis [Unknown]
